FAERS Safety Report 4478978-X (Version None)
Quarter: 2004Q3

REPORT INFORMATION
  Report Type: 
  Country: None (occurrence: None)
  Receive Date: 20040923
  Receipt Date: 20040723
  Transmission Date: 20050211
  Serious: No
  Sender: FDA-Public Use
  Company Number: 208049

PATIENT
  Age: 54 Year
  Sex: Female

DRUGS (10)
  1. AVASTIN [Suspect]
     Indication: COLORECTAL CANCER METASTATIC
     Dosage: 500 MG, Q2W, INTRAVENOUS
     Route: 042
     Dates: start: 20040629
  2. IRINOTECAN HCL [Concomitant]
  3. FLUOROURACIL [Concomitant]
  4. LEUCOVORIN CALCIUM [Concomitant]
  5. PRILOSEC [Concomitant]
  6. LASIX [Concomitant]
  7. GLUCOTROL [Concomitant]
  8. IBUPROFEN [Concomitant]
  9. ACTOS [Concomitant]
  10. CORGARD [Concomitant]

REACTIONS (1)
  - NEUTROPHIL COUNT DECREASED [None]
